FAERS Safety Report 11942949 (Version 1)
Quarter: 2016Q1

REPORT INFORMATION
  Report Type: Spontaneous
  Country: US (occurrence: US)
  Receive Date: 20160125
  Receipt Date: 20160125
  Transmission Date: 20160526
  Serious: No
  Sender: FDA-Public Use
  Company Number: US-UNITED THERAPEUTICS-UNT-2015-009831

PATIENT
  Age: 61 Year
  Sex: Female
  Weight: 58.96 kg

DRUGS (2)
  1. XARELTO [Concomitant]
     Active Substance: RIVAROXABAN
     Indication: PRODUCT USED FOR UNKNOWN INDICATION
  2. REMODULIN [Suspect]
     Active Substance: TREPROSTINIL
     Indication: PULMONARY ARTERIAL HYPERTENSION
     Dosage: 0.081 ?G/KG/MIN, CONTINUING
     Route: 058
     Dates: start: 20140204

REACTIONS (3)
  - Pyrexia [Recovered/Resolved]
  - Infusion site haemorrhage [Recovered/Resolved]
  - Infusion site abscess [Recovered/Resolved]

NARRATIVE: CASE EVENT DATE: 201508
